FAERS Safety Report 12595301 (Version 1)
Quarter: 2016Q3

REPORT INFORMATION
  Report Type: Spontaneous
  Country: DE (occurrence: DE)
  Receive Date: 20160727
  Receipt Date: 20160727
  Transmission Date: 20161109
  Serious: Yes (Hospitalization)
  Sender: FDA-Public Use
  Company Number: DE-ELI_LILLY_AND_COMPANY-DE201606010129

PATIENT
  Age: 80 Year
  Sex: Female

DRUGS (1)
  1. FORSTEO [Suspect]
     Active Substance: TERIPARATIDE
     Indication: PRODUCT USED FOR UNKNOWN INDICATION
     Dosage: UNK, UNKNOWN
     Route: 058
     Dates: start: 20150814

REACTIONS (12)
  - Cellulitis [Recovered/Resolved]
  - Erysipelas [Unknown]
  - Hypokalaemia [Recovered/Resolved]
  - Cerebrovascular accident [Unknown]
  - Arthralgia [Unknown]
  - Myosclerosis [Unknown]
  - Diabetes mellitus inadequate control [Unknown]
  - Hypersensitivity [Unknown]
  - Blood glucose increased [Recovered/Resolved]
  - Pelvic fracture [Unknown]
  - Depression [Unknown]
  - Mobility decreased [Unknown]
